FAERS Safety Report 11095663 (Version 1)
Quarter: 2015Q2

REPORT INFORMATION
  Report Type: Spontaneous
  Country: US (occurrence: US)
  Receive Date: 20150506
  Receipt Date: 20150506
  Transmission Date: 20150821
  Serious: Yes (Congenital Anomaly)
  Sender: FDA-Public Use
  Company Number: US-GLENMARK GENERICS INC.-2015GMK016582

PATIENT

DRUGS (1)
  1. LITHIUM CARBONATE ER TABLETS USP, 300MG [Suspect]
     Active Substance: LITHIUM CARBONATE
     Indication: PRODUCT USED FOR UNKNOWN INDICATION
     Dosage: 2 DF, HS
     Dates: start: 201411, end: 20150122

REACTIONS (2)
  - Foetal exposure during pregnancy [Unknown]
  - Kidney enlargement [Not Recovered/Not Resolved]
